FAERS Safety Report 24106962 (Version 1)
Quarter: 2024Q3

REPORT INFORMATION
  Report Type: Report from Study
  Country: US (occurrence: US)
  Receive Date: 20240717
  Receipt Date: 20240717
  Transmission Date: 20241016
  Serious: Yes (Death)
  Sender: ABBVIE
  Company Number: US-ABBVIE-5841022

PATIENT

DRUGS (1)
  1. CEFTAROLINE FOSAMIL [Suspect]
     Active Substance: CEFTAROLINE FOSAMIL
     Indication: Staphylococcal bacteraemia
     Route: 065

REACTIONS (4)
  - Hepatotoxicity [Fatal]
  - Nephropathy toxic [Fatal]
  - Vaccination site pain [Unknown]
  - Off label use [Unknown]
